FAERS Safety Report 24056594 (Version 1)
Quarter: 2024Q3

REPORT INFORMATION
  Report Type: Other
  Country: CN (occurrence: CN)
  Receive Date: 20240705
  Receipt Date: 20240705
  Transmission Date: 20241016
  Serious: Yes (Other)
  Sender: GENUS LIFESCIENCES
  Company Number: CN-Genus_Lifesciences-USA-POI0580202400141

PATIENT
  Age: 79 Year
  Sex: Female

DRUGS (1)
  1. YOSPRALA [Suspect]
     Active Substance: ASPIRIN\OMEPRAZOLE
     Indication: Coronary artery disease
     Dosage: UNKNOWN

REACTIONS (1)
  - Mallory-Weiss syndrome [Recovered/Resolved]

NARRATIVE: CASE EVENT DATE: 20240101
